FAERS Safety Report 8173982-2 (Version None)
Quarter: 2012Q1

REPORT INFORMATION
  Report Type: 
  Country: None (occurrence: None)
  Receive Date: 20120229
  Receipt Date: 20120228
  Transmission Date: 20120608
  Serious: Yes (Death, Hospitalization)
  Sender: FDA-Public Use
  Company Number: AU-B.I. PHARMACEUTICALS,INC./RIDGEFIELD-2012-AU-00328AU

PATIENT
  Sex: Female
  Weight: 145 kg

DRUGS (7)
  1. PERINDOPRIL ERBUMINE [Concomitant]
  2. FUROSEMIDE [Concomitant]
  3. PANTOPRAZOLE [Concomitant]
  4. PRADAXA [Suspect]
     Indication: CEREBROVASCULAR ACCIDENT PROPHYLAXIS
     Dosage: 220 MG
  5. IMDUR [Concomitant]
  6. LIPITOR [Concomitant]
  7. PRADAXA [Suspect]
     Indication: ATRIAL FIBRILLATION

REACTIONS (3)
  - HYPOVOLAEMIA [None]
  - RENAL FAILURE [None]
  - CARDIAC FAILURE [None]
